FAERS Safety Report 9467698 (Version 1)
Quarter: 2013Q3

REPORT INFORMATION
  Report Type: Report from Study
  Country: CA (occurrence: CA)
  Receive Date: 20130821
  Receipt Date: 20130821
  Transmission Date: 20140515
  Serious: Yes (Other)
  Sender: FDA-Public Use
  Company Number: CA-JNJFOC-20130805553

PATIENT
  Age: 68 Year
  Sex: Female

DRUGS (20)
  1. CLONAZEPAM [Concomitant]
     Dosage: FOR PASSED 12 YEARS
     Route: 065
     Dates: start: 2006
  2. CLONIDINE [Concomitant]
     Indication: MENOPAUSE
     Dosage: FOR PAST 13 YEARS OR SO
     Route: 065
  3. DOMPERIDONE [Concomitant]
     Indication: HYPERCHLORHYDRIA
     Dosage: FOR PAST 20 YEARS OR SO
     Route: 065
  4. HYDROCHLOROTHIAZIDE [Concomitant]
     Indication: FLUID RETENTION
     Dosage: 1/2 TABLET AT DINNER, FOR PAST 10 YEARS.
     Route: 065
  5. ASPIRIN [Concomitant]
     Indication: ARTHRITIS
     Route: 065
  6. IRBESARTAN [Concomitant]
     Indication: MAJOR DEPRESSION
     Route: 065
     Dates: start: 2003
  7. FOLIC ACID [Concomitant]
     Dosage: EXCEPT SATURDAYS
     Route: 065
     Dates: start: 2003
  8. METHOTREXATE [Concomitant]
     Indication: RHEUMATOID ARTHRITIS
     Dosage: EXCEPT SATURDAYS
     Route: 058
     Dates: start: 2006
  9. SIMVASTATIN [Concomitant]
     Indication: BLOOD CHOLESTEROL
     Route: 065
     Dates: start: 2006
  10. SYNTHROID [Concomitant]
     Indication: HYPOTHYROIDISM
     Dosage: FOR PAST 20 YEARS
     Route: 065
  11. EFFEXOR [Concomitant]
     Indication: MAJOR DEPRESSION
     Route: 065
     Dates: start: 2003
  12. EFFEXOR [Concomitant]
     Indication: MAJOR DEPRESSION
     Route: 065
     Dates: start: 2003
  13. EFFEXOR [Concomitant]
     Indication: MAJOR DEPRESSION
     Route: 065
     Dates: start: 2003
  14. LYRICA [Concomitant]
     Route: 065
     Dates: start: 2006, end: 2012
  15. CYCLOBENZAPRINE [Concomitant]
     Indication: SLEEP DISORDER
     Dosage: AS NEEDED, 1/2 TABLET IF UNABLE TO SLEEP
     Route: 065
  16. CALCIUM [Concomitant]
     Dosage: AT BREAKFAST AND DINNER TIME
     Route: 065
  17. PANTOPRAZOLE [Concomitant]
     Indication: GASTROINTESTINAL DISORDER THERAPY
     Dosage: AT BREAKFAST AND DINNER TIME
     Route: 065
  18. REMICADE [Suspect]
     Indication: RHEUMATOID ARTHRITIS
     Route: 042
     Dates: start: 2006
  19. CELEBREX [Concomitant]
     Route: 065
     Dates: start: 2006
  20. CELEBREX [Concomitant]
     Route: 065
     Dates: start: 201306

REACTIONS (7)
  - Knee arthroplasty [Unknown]
  - Glucose tolerance impaired [Unknown]
  - Hypoaesthesia [Recovering/Resolving]
  - Fatigue [Recovering/Resolving]
  - Joint swelling [Recovering/Resolving]
  - Local swelling [Recovering/Resolving]
  - Influenza [Unknown]
